FAERS Safety Report 5911792-4 (Version None)
Quarter: 2008Q4

REPORT INFORMATION
  Report Type: 
  Country: None (occurrence: None)
  Receive Date: 20081008
  Receipt Date: 20081001
  Transmission Date: 20090506
  Serious: Yes (Death, Hospitalization)
  Sender: FDA-Public Use
  Company Number: JP-ASTRAZENECA-2008AP06124

PATIENT
  Age: 80 Year
  Sex: Male
  Weight: 61.3 kg

DRUGS (4)
  1. ZOLADEX [Suspect]
     Indication: PROSTATE CANCER
     Route: 058
     Dates: start: 20080122, end: 20080723
  2. CASODEX [Suspect]
     Indication: PROSTATE CANCER
     Route: 048
     Dates: start: 20051101
  3. FINIBAX [Suspect]
     Indication: PYREXIA
     Route: 041
     Dates: start: 20080727, end: 20080731
  4. KREMEZIN [Concomitant]
     Route: 048
     Dates: start: 20050901

REACTIONS (3)
  - LIVER DISORDER [None]
  - PYREXIA [None]
  - RASH [None]
